FAERS Safety Report 6427838-3 (Version None)
Quarter: 2009Q4

REPORT INFORMATION
  Report Type: 
  Country: None (occurrence: None)
  Receive Date: 20091105
  Receipt Date: 20091027
  Transmission Date: 20100525
  Serious: No
  Sender: FDA-Public Use
  Company Number: US-B.I. PHARMACEUTICALS,INC./RIDGEFIELD-2009-BP-11243BP

PATIENT
  Sex: Male

DRUGS (10)
  1. FLOMAX [Suspect]
     Indication: PROSTATIC OPERATION
  2. WARFARIN SODIUM [Concomitant]
  3. METOPROLOL TARTRATE [Concomitant]
  4. TIKOSYN [Concomitant]
     Dosage: 1000 MCG
  5. SIMCOR [Concomitant]
  6. ASPIRIN [Concomitant]
  7. PANTOPRAZOLE [Concomitant]
     Dosage: 40 MG
  8. SIMVASTATIN [Concomitant]
     Dosage: 20 MG
  9. IRON [Concomitant]
     Dosage: 325 MG
  10. MULTI VITAMIN WITHOUT VITAMIN K [Concomitant]

REACTIONS (1)
  - DRUG INEFFECTIVE [None]
